FAERS Safety Report 7705038-4 (Version None)
Quarter: 2011Q3

REPORT INFORMATION
  Report Type: 
  Country: None (occurrence: None)
  Receive Date: 20110823
  Receipt Date: 20110812
  Transmission Date: 20111222
  Serious: Yes (Hospitalization)
  Sender: FDA-Public Use
  Company Number: US-BAXTER-2011BH025373

PATIENT
  Sex: Male

DRUGS (4)
  1. DIANEAL [Suspect]
     Route: 033
     Dates: start: 20090101
  2. DIANEAL [Suspect]
     Indication: DIABETES MELLITUS
     Route: 033
     Dates: start: 20090101
  3. DIANEAL [Suspect]
     Indication: PERITONEAL DIALYSIS
     Route: 033
     Dates: start: 20090101
  4. DIANEAL [Suspect]
     Indication: RENAL FAILURE CHRONIC
     Route: 033
     Dates: start: 20090101

REACTIONS (3)
  - CARDIAC FAILURE CONGESTIVE [None]
  - INFECTIOUS PERITONITIS [None]
  - HAEMOPTYSIS [None]
